FAERS Safety Report 12192932 (Version 1)
Quarter: 2016Q1

REPORT INFORMATION
  Report Type: Spontaneous
  Country: US (occurrence: US)
  Receive Date: 20160318
  Receipt Date: 20160318
  Transmission Date: 20160526
  Serious: Yes (Disabling, Congenital Anomaly, Other)
  Sender: FDA-Public Use
  Company Number: US-CUMBERLAND PHARMACEUTICALS INC.-1049332

PATIENT
  Age: 1 Month

DRUGS (1)
  1. ACETADOTE [Suspect]
     Active Substance: ACETYLCYSTEINE
     Route: 042

REACTIONS (5)
  - Necrotising colitis [None]
  - Sepsis [None]
  - Cerebral palsy [None]
  - Intraventricular haemorrhage [None]
  - Periventricular leukomalacia [None]
